FAERS Safety Report 9653334 (Version 1)
Quarter: 2013Q4

REPORT INFORMATION
  Report Type: Spontaneous
  Country: FR (occurrence: FR)
  Receive Date: 20131029
  Receipt Date: 20131029
  Transmission Date: 20140711
  Serious: Yes (Hospitalization, Congenital Anomaly)
  Sender: FDA-Public Use
  Company Number: FR-PFIZER INC-2013304101

PATIENT
  Sex: Female

DRUGS (5)
  1. XANAX [Suspect]
     Dosage: 0.25 MG, 1X/DAY
     Route: 064
  2. COMBIVIR [Suspect]
     Indication: HIV TEST POSITIVE
     Dosage: 2 DF (150MG/300MG), DAILY
     Route: 064
     Dates: start: 2002
  3. VIRAMUNE [Suspect]
     Indication: HIV TEST POSITIVE
     Dosage: 400 MG, DAILY
     Route: 064
     Dates: start: 2002
  4. TARDYFERON [Concomitant]
     Dosage: 1 DF, DAILY
     Route: 064
  5. UVEDOSE [Concomitant]
     Dosage: TWICE, AT 32 WEEKS POST-LMP AND AT 33 WEEKS AND 5 DAYS POST-LMP
     Route: 064

REACTIONS (3)
  - Maternal exposure during pregnancy [Unknown]
  - Pulmonary artery atresia [Unknown]
  - Atrial septal defect [Unknown]
